FAERS Safety Report 21728160 (Version 2)
Quarter: 2022Q4

REPORT INFORMATION
  Report Type: Spontaneous
  Country: MX (occurrence: MX)
  Receive Date: 20221214
  Receipt Date: 20221222
  Transmission Date: 20230112
  Serious: Yes (Other)
  Sender: FDA-Public Use
  Company Number: MX-GUERBET / JUAMA S.A. DE C.V-MX-20220032

PATIENT
  Age: 32 Year
  Sex: Male
  Weight: 57.4 kg

DRUGS (1)
  1. OPTIRAY 350 [Suspect]
     Active Substance: IOVERSOL
     Indication: Computerised tomogram abdomen
     Route: 042
     Dates: start: 20221101, end: 20221101

REACTIONS (7)
  - Feeling hot [Recovered/Resolved]
  - Gastrooesophageal reflux disease [Recovered/Resolved]
  - Erythema [Recovered/Resolved]
  - Vomiting [Recovered/Resolved]
  - Rash [Recovered/Resolved]
  - Swelling [Recovered/Resolved]
  - Throat tightness [Recovered/Resolved]

NARRATIVE: CASE EVENT DATE: 20221101
